FAERS Safety Report 9863963 (Version 1)
Quarter: 2014Q1

REPORT INFORMATION
  Report Type: Spontaneous
  Country: ES (occurrence: ES)
  Receive Date: 20140203
  Receipt Date: 20140203
  Transmission Date: 20141002
  Serious: Yes (Hospitalization)
  Sender: FDA-Public Use
  Company Number: PHHY2014ES011972

PATIENT
  Age: 42 Year
  Sex: Female

DRUGS (1)
  1. ZOMETA [Suspect]
     Indication: PROPHYLAXIS
     Dosage: 4 MG, EVERY 15 DAYS
     Route: 042

REACTIONS (2)
  - Pleural effusion [Recovering/Resolving]
  - Pyrexia [Recovered/Resolved]
